FAERS Safety Report 4514240-4 (Version None)
Quarter: 2004Q4

REPORT INFORMATION
  Report Type: 
  Country: None (occurrence: None)
  Receive Date: 20041126
  Receipt Date: 20041115
  Transmission Date: 20050328
  Serious: Yes (Other)
  Sender: FDA-Public Use
  Company Number: SUSI-2004-00749

PATIENT
  Age: 15 Year
  Sex: Male

DRUGS (1)
  1. ADDERALL 30 [Suspect]
     Indication: ATTENTION DEFICIT/HYPERACTIVITY DISORDER
     Dosage: 10 MG, 2X/DAY; BID, UNK
     Dates: start: 20000101

REACTIONS (2)
  - CARDIAC FIBRILLATION [None]
  - HEART RATE INCREASED [None]
